FAERS Safety Report 17358730 (Version 1)
Quarter: 2020Q1

REPORT INFORMATION
  Report Type: Spontaneous
  Country: CH (occurrence: CH)
  Receive Date: 20200201
  Receipt Date: 20200201
  Transmission Date: 20200409
  Serious: Yes (Death, Other)
  Sender: FDA-Public Use
  Company Number: NVSC2020CH024365

PATIENT
  Age: 64 Year
  Sex: Male

DRUGS (1)
  1. PARACETAMOL [Suspect]
     Active Substance: ACETAMINOPHEN
     Indication: PRODUCT USED FOR UNKNOWN INDICATION
     Dosage: 9 G, QD
     Route: 065

REACTIONS (3)
  - Hepatic failure [Fatal]
  - Accidental overdose [Unknown]
  - Toxicity to various agents [Fatal]
